FAERS Safety Report 9358323 (Version 1)
Quarter: 2013Q2

REPORT INFORMATION
  Report Type: Spontaneous
  Country: US (occurrence: US)
  Receive Date: 20130620
  Receipt Date: 20130620
  Transmission Date: 20140414
  Serious: Yes (Other)
  Sender: FDA-Public Use
  Company Number: US-JNJFOC-20130611292

PATIENT
  Age: 36 Year
  Sex: Female

DRUGS (2)
  1. NICOTINE POLACRILEX 2 MG [Suspect]
     Indication: SMOKING CESSATION THERAPY
     Route: 065
     Dates: start: 20130609, end: 20130613
  2. NICOTINE POLACRILEX LOZENGE [Suspect]
     Indication: SMOKING CESSATION THERAPY
     Route: 065

REACTIONS (4)
  - Nicotine dependence [Not Recovered/Not Resolved]
  - Intentional drug misuse [Unknown]
  - Product quality issue [Unknown]
  - Abdominal discomfort [Not Recovered/Not Resolved]
